FAERS Safety Report 8349350-7 (Version None)
Quarter: 2012Q2

REPORT INFORMATION
  Report Type: 
  Country: None (occurrence: None)
  Receive Date: 20120510
  Receipt Date: 20120504
  Transmission Date: 20120825
  Serious: Yes (Disabling)
  Sender: FDA-Public Use
  Company Number: DK-PFIZER INC-2012109607

PATIENT
  Age: 57 Year
  Sex: Female

DRUGS (1)
  1. EPIRUBICIN HYDROCHLORIDE [Suspect]
     Indication: BLADDER PAPILLOMA
     Dates: start: 20010531

REACTIONS (18)
  - ARTHRALGIA [None]
  - WEIGHT DECREASED [None]
  - MUSCULAR WEAKNESS [None]
  - JOINT DISLOCATION [None]
  - MALAISE [None]
  - MUSCULOSKELETAL STIFFNESS [None]
  - PYREXIA [None]
  - PAIN IN EXTREMITY [None]
  - MOBILITY DECREASED [None]
  - MUSCLE ATROPHY [None]
  - JOINT STIFFNESS [None]
  - SKIN EXFOLIATION [None]
  - ARTHROPATHY [None]
  - JOINT SWELLING [None]
  - NAUSEA [None]
  - FATIGUE [None]
  - HYPERSENSITIVITY [None]
  - HAND DEFORMITY [None]
